FAERS Safety Report 16861871 (Version 4)
Quarter: 2020Q2

REPORT INFORMATION
  Report Type: Report from Study
  Country: US (occurrence: US)
  Receive Date: 20190927
  Receipt Date: 20200605
  Transmission Date: 20200713
  Serious: Yes (Other)
  Sender: FDA-Public Use
  Company Number: US-ACADIA PHARMACEUTICALS INC.-ACA-2019-014176

PATIENT
  Sex: Male

DRUGS (4)
  1. H2 BLOCKER (CIMETIDINE HYDROCHLORIDE) [Suspect]
     Active Substance: CIMETIDINE HYDROCHLORIDE
     Dosage: UNK
     Route: 065
  2. NUPLAZID [Suspect]
     Active Substance: PIMAVANSERIN TARTRATE
     Indication: HALLUCINATION
     Dosage: 34 MG, QD
     Route: 048
     Dates: start: 20190918
  3. NUPLAZID [Suspect]
     Active Substance: PIMAVANSERIN TARTRATE
     Indication: PARKINSON^S DISEASE
     Dosage: 34 MG, QD
     Route: 048
     Dates: start: 201908, end: 2019
  4. H2 BLOCKER (CIMETIDINE HYDROCHLORIDE) [Suspect]
     Active Substance: CIMETIDINE HYDROCHLORIDE
     Indication: PRODUCT USED FOR UNKNOWN INDICATION
     Dosage: UNK
     Route: 065

REACTIONS (4)
  - Hallucination [Recovered/Resolved]
  - Gingivitis [Unknown]
  - Gastrooesophageal reflux disease [Recovered/Resolved]
  - Hallucination [Not Recovered/Not Resolved]
